FAERS Safety Report 9371945 (Version 1)
Quarter: 2013Q2

REPORT INFORMATION
  Report Type: Spontaneous
  Country: US (occurrence: US)
  Receive Date: 20130627
  Receipt Date: 20130627
  Transmission Date: 20140414
  Serious: Yes (Other)
  Sender: FDA-Public Use
  Company Number: US-JNJFOC-20130609598

PATIENT
  Sex: Male
  Weight: 77.11 kg

DRUGS (10)
  1. REMICADE [Suspect]
     Indication: RHEUMATOID ARTHRITIS
     Route: 042
     Dates: start: 201204, end: 2012
  2. REMICADE [Suspect]
     Indication: RHEUMATOID ARTHRITIS
     Route: 042
     Dates: start: 201209, end: 2013
  3. PREDNISONE [Suspect]
     Indication: HYPERSENSITIVITY
     Route: 065
     Dates: end: 201302
  4. VALIUM [Concomitant]
     Indication: ANXIETY
     Route: 048
     Dates: start: 1970
  5. LITHIUM [Concomitant]
     Indication: BIPOLAR I DISORDER
     Route: 048
     Dates: start: 1988, end: 2013
  6. LITHIUM [Concomitant]
     Indication: BIPOLAR I DISORDER
     Route: 048
     Dates: start: 1988, end: 2013
  7. CREON [Concomitant]
     Indication: PANCREATITIS CHRONIC
     Dosage: 24000 UNITS
     Route: 048
     Dates: start: 2000, end: 2013
  8. DOXAZOSIN [Concomitant]
     Indication: BENIGN PROSTATIC HYPERPLASIA
     Route: 048
     Dates: start: 2010, end: 2013
  9. BUPROPION SR [Concomitant]
     Indication: DEPRESSION
     Route: 048
     Dates: start: 2008, end: 2013
  10. ANTIALLERGIC DRUGS [Concomitant]
     Indication: PREMEDICATION
     Route: 065

REACTIONS (6)
  - Skin papilloma [Unknown]
  - Malaise [Unknown]
  - Drug ineffective [Not Recovered/Not Resolved]
  - Hypersensitivity [Not Recovered/Not Resolved]
  - Pain [Not Recovered/Not Resolved]
  - Constipation [Not Recovered/Not Resolved]
